FAERS Safety Report 10048439 (Version 2)
Quarter: 2014Q2

REPORT INFORMATION
  Report Type: Spontaneous
  Country: US (occurrence: US)
  Receive Date: 20140331
  Receipt Date: 20140619
  Transmission Date: 20141212
  Serious: Yes (Death, Hospitalization, Other)
  Sender: FDA-Public Use
  Company Number: US-MERCK-1403USA013504

PATIENT
  Sex: Male
  Weight: 113.38 kg

DRUGS (4)
  1. JANUVIA [Suspect]
     Indication: TYPE 2 DIABETES MELLITUS
     Dosage: 100 MG, QD
     Route: 048
     Dates: start: 20061129, end: 20100422
  2. BYETTA [Suspect]
     Indication: TYPE 2 DIABETES MELLITUS
     Dosage: 5 MICROGRAM, BID
     Dates: start: 20070612, end: 20070628
  3. BYETTA [Suspect]
     Dosage: 10 MICROGRAM, BID
     Dates: start: 20070629, end: 20080919
  4. VICTOZA [Suspect]
     Indication: TYPE 2 DIABETES MELLITUS
     Dosage: 1.8 MG, QD
     Route: 058
     Dates: start: 20100422, end: 20130104

REACTIONS (58)
  - Pancreatic carcinoma [Fatal]
  - Bile duct obstruction [Unknown]
  - Bile duct stent insertion [Unknown]
  - Failure to thrive [Unknown]
  - Gastrointestinal haemorrhage [Unknown]
  - Dehydration [Unknown]
  - Malnutrition [Unknown]
  - Obstruction gastric [Unknown]
  - Pancreatic duct obstruction [Unknown]
  - Metastases to liver [Unknown]
  - Sepsis [Unknown]
  - Prostatomegaly [Unknown]
  - Anaemia of chronic disease [Unknown]
  - Infection [Unknown]
  - Gastrointestinal haemorrhage [Unknown]
  - Upper gastrointestinal haemorrhage [Unknown]
  - Deep vein thrombosis [Unknown]
  - Prostatic obstruction [Unknown]
  - Hypokalaemia [Unknown]
  - Lower gastrointestinal haemorrhage [Unknown]
  - Haemorrhagic anaemia [Unknown]
  - Haemorrhagic anaemia [Unknown]
  - Renal failure [Unknown]
  - Catheter placement [Unknown]
  - Diabetic neuropathy [Unknown]
  - Bile duct stent insertion [Unknown]
  - Neurolysis [Unknown]
  - Treatment noncompliance [Unknown]
  - Ventricular tachycardia [Unknown]
  - Hypotension [Unknown]
  - Hypoalbuminaemia [Unknown]
  - Deep vein thrombosis [Unknown]
  - Nephrolithiasis [Unknown]
  - Pain [Unknown]
  - Subcutaneous abscess [Unknown]
  - Musculoskeletal pain [Unknown]
  - Vertigo [Unknown]
  - Vertigo [Unknown]
  - Rheumatoid arthritis [Unknown]
  - Gastrointestinal haemorrhage [Unknown]
  - Head injury [Unknown]
  - Vertigo [Unknown]
  - Chest pain [Unknown]
  - Oesophageal ulcer [Unknown]
  - Mucosal inflammation [Unknown]
  - Temperature intolerance [Unknown]
  - Pleural effusion [Unknown]
  - Atelectasis [Unknown]
  - Hepatic cyst [Unknown]
  - Ascites [Unknown]
  - Nephrolithiasis [Unknown]
  - Cataract [Unknown]
  - Renal stone removal [Unknown]
  - Left ventricular dysfunction [Unknown]
  - Gastrointestinal tube insertion [Unknown]
  - Change of bowel habit [Unknown]
  - Arrhythmia [Unknown]
  - Back pain [Unknown]
